FAERS Safety Report 12899169 (Version 2)
Quarter: 2017Q1

REPORT INFORMATION
  Report Type: Report from Study
  Country: IE (occurrence: IE)
  Receive Date: 20161101
  Receipt Date: 20170224
  Transmission Date: 20170428
  Serious: Yes (Other)
  Sender: FDA-Public Use
  Company Number: PHFR2016IE008617

PATIENT
  Age: 50 Year
  Sex: Female

DRUGS (1)
  1. COSENTYX [Suspect]
     Active Substance: SECUKINUMAB
     Indication: PSORIATIC ARTHROPATHY
     Dosage: 300 MG, UNK
     Route: 058
     Dates: start: 20160926

REACTIONS (4)
  - Kidney infection [Recovered/Resolved]
  - Lower respiratory tract infection [Recovered/Resolved]
  - Burning sensation [Unknown]
  - Pyrexia [Unknown]

NARRATIVE: CASE EVENT DATE: 20161021
